FAERS Safety Report 21904097 (Version 1)
Quarter: 2023Q1

REPORT INFORMATION
  Report Type: Spontaneous
  Country: US (occurrence: None)
  Receive Date: 20230123
  Receipt Date: 20230123
  Transmission Date: 20230418
  Serious: Yes (Hospitalization)
  Sender: FDA-Public Use
  Company Number: None

PATIENT
  Sex: Female

DRUGS (1)
  1. HUMIRA [Suspect]
     Active Substance: ADALIMUMAB
     Route: 058

REACTIONS (7)
  - Hyponatraemia [None]
  - Hypertension [None]
  - Pain in extremity [None]
  - Dry mouth [None]
  - COVID-19 [None]
  - Electrolyte imbalance [None]
  - Brain oedema [None]
